FAERS Safety Report 8541421-5 (Version None)
Quarter: 2012Q3

REPORT INFORMATION
  Report Type: 
  Country: None (occurrence: None)
  Receive Date: 20120726
  Receipt Date: 20110915
  Transmission Date: 20120928
  Serious: No
  Sender: FDA-Public Use
  Company Number: US-ASTRAZENECA-2011SE55636

PATIENT
  Age: 15 Year
  Sex: Male

DRUGS (5)
  1. CARBETROL [Concomitant]
  2. ATAVAND [Concomitant]
  3. EDIRAL [Concomitant]
  4. WELLBUTRIN [Concomitant]
  5. SEROQUEL [Suspect]
     Indication: BIPOLAR DISORDER
     Route: 048

REACTIONS (6)
  - HEPATIC ENZYME INCREASED [None]
  - BLOOD CREATININE INCREASED [None]
  - BLOOD TRIGLYCERIDES INCREASED [None]
  - BLOOD UREA INCREASED [None]
  - BLOOD PROLACTIN INCREASED [None]
  - BLOOD THYROID STIMULATING HORMONE INCREASED [None]
